FAERS Safety Report 5714963-5 (Version None)
Quarter: 2008Q2

REPORT INFORMATION
  Report Type: 
  Country: None (occurrence: None)
  Receive Date: 20080423
  Receipt Date: 20080414
  Transmission Date: 20081010
  Serious: Yes (Life-Threatening, Hospitalization, Other)
  Sender: FDA-Public Use
  Company Number: HQWYE946230AUG07

PATIENT
  Sex: Male
  Weight: 21 kg

DRUGS (1)
  1. TEMSIROLIMUS [Suspect]
     Indication: NEUROBLASTOMA
     Route: 042
     Dates: start: 20070720, end: 20070827

REACTIONS (4)
  - DISEASE PROGRESSION [None]
  - PERICARDIAL EFFUSION [None]
  - PLEURAL EFFUSION [None]
  - TUMOUR PAIN [None]
